APPROVED DRUG PRODUCT: PROVENTIL
Active Ingredient: ALBUTEROL SULFATE
Strength: EQ 2MG BASE/5ML **Federal Register determination that product was not discontinued or withdrawn for safety or effectiveness reasons**
Dosage Form/Route: SYRUP;ORAL
Application: N018062 | Product #001
Applicant: SCHERING CORP SUB SCHERING PLOUGH CORP
Approved: Jan 19, 1983 | RLD: Yes | RS: No | Type: DISCN